FAERS Safety Report 12382155 (Version 1)
Quarter: 2016Q2

REPORT INFORMATION
  Report Type: Spontaneous
  Country: US (occurrence: US)
  Receive Date: 20160518
  Receipt Date: 20160518
  Transmission Date: 20160815
  Serious: Yes (Hospitalization, Other)
  Sender: FDA-Public Use
  Company Number: US-GLAXOSMITHKLINE-US2016068393

PATIENT
  Age: 66 Year
  Sex: Male

DRUGS (3)
  1. VOLTAREN [Suspect]
     Active Substance: DICLOFENAC SODIUM
     Indication: LOWER LIMB FRACTURE
     Dosage: UNK
     Dates: start: 2012
  2. VOLTAREN [Suspect]
     Active Substance: DICLOFENAC SODIUM
     Dosage: UNK
     Dates: start: 201604
  3. DEMEROL [Concomitant]
     Active Substance: MEPERIDINE HYDROCHLORIDE
     Indication: PRODUCT USED FOR UNKNOWN INDICATION
     Dosage: UNK

REACTIONS (12)
  - Road traffic accident [Unknown]
  - Arterial injury [Unknown]
  - Somnolence [Unknown]
  - Blood test abnormal [Unknown]
  - Full blood count [Unknown]
  - Asthenia [Unknown]
  - Chest pain [Unknown]
  - Gastric haemorrhage [Unknown]
  - Product use issue [Unknown]
  - Carbon dioxide increased [Unknown]
  - Drug administration error [Unknown]
  - Poor quality sleep [Unknown]

NARRATIVE: CASE EVENT DATE: 201502
